FAERS Safety Report 9244724 (Version 1)
Quarter: 2013Q1

REPORT INFORMATION
  Report Type: Spontaneous
  Country: US (occurrence: None)
  Receive Date: 20121130
  Receipt Date: 20121130
  Transmission Date: 20140127
  Serious: Yes (Other)
  Sender: FDA-Public Use
  Company Number: PHEH2011US009851

PATIENT
  Sex: 0

DRUGS (3)
  1. VOLTAREN [Suspect]
  2. INDOCIN [Suspect]
  3. NSAIDS [Suspect]

REACTIONS (3)
  - Haematochezia [None]
  - Muscle spasms [None]
  - Malaise [None]
